FAERS Safety Report 21873424 (Version 2)
Quarter: 2023Q1

REPORT INFORMATION
  Report Type: Spontaneous
  Country: US (occurrence: US)
  Receive Date: 20230117
  Receipt Date: 20230207
  Transmission Date: 20230417
  Serious: No
  Sender: FDA-Public Use
  Company Number: US-TEVA-2023-US-2845094

PATIENT

DRUGS (1)
  1. LORAZEPAM [Suspect]
     Active Substance: LORAZEPAM
     Indication: Sleep disorder
     Route: 065
     Dates: start: 2018

REACTIONS (4)
  - Headache [Not Recovered/Not Resolved]
  - Fatigue [Unknown]
  - Drug withdrawal syndrome [Unknown]
  - Drug ineffective [Unknown]

NARRATIVE: CASE EVENT DATE: 20180101
